FAERS Safety Report 4786050-4 (Version None)
Quarter: 2005Q3

REPORT INFORMATION
  Report Type: 
  Country: None (occurrence: None)
  Receive Date: 20050930
  Receipt Date: 20050930
  Transmission Date: 20060218
  Serious: Yes (Life-Threatening, Hospitalization)
  Sender: FDA-Public Use
  Company Number: None

PATIENT
  Age: 78 Year
  Sex: Female
  Weight: 59.3 kg

DRUGS (10)
  1. HYDROGEN PEROXIDE ^HUMAN [Suspect]
     Dates: end: 20050920
  2. CLONIDINE [Concomitant]
  3. FUROSEMIDE [Concomitant]
  4. CAPTOPRIL [Concomitant]
  5. LOPRESSOR [Concomitant]
  6. PHENERGAN [Concomitant]
  7. VIT A [Concomitant]
  8. NIACIN [Concomitant]
  9. ADVAIR DISKUS 100/50 [Concomitant]
  10. COMBIVENT [Concomitant]

REACTIONS (8)
  - ABDOMINAL PAIN [None]
  - CHEST DISCOMFORT [None]
  - CORONARY ARTERY STENOSIS [None]
  - HYPERTENSION [None]
  - MYOCARDIAL INFARCTION [None]
  - NAUSEA [None]
  - TACHYCARDIA [None]
  - VOMITING [None]
